FAERS Safety Report 23765140 (Version 1)
Quarter: 2024Q2

REPORT INFORMATION
  Report Type: Spontaneous
  Country: US (occurrence: US)
  Receive Date: 20240420
  Receipt Date: 20240420
  Transmission Date: 20240716
  Serious: No
  Sender: FDA-Public Use
  Company Number: US-TEVA-VS-3178366

PATIENT
  Age: 37 Year
  Sex: Female
  Weight: 56.2 kg

DRUGS (2)
  1. LISINOPRIL [Suspect]
     Active Substance: LISINOPRIL
     Indication: Product used for unknown indication
     Route: 065
     Dates: end: 20240314
  2. JYNARQUE [Suspect]
     Active Substance: TOLVAPTAN
     Indication: Polycystic liver disease
     Dosage: 90(EVERY MORNING) AND 30MG (EVERY EVENING)
     Route: 065
     Dates: start: 20211208

REACTIONS (2)
  - Cough [Unknown]
  - Upper respiratory tract infection [Unknown]
